FAERS Safety Report 24800079 (Version 1)
Quarter: 2025Q1

REPORT INFORMATION
  Report Type: Spontaneous
  Country: CN (occurrence: CN)
  Receive Date: 20250102
  Receipt Date: 20250102
  Transmission Date: 20250408
  Serious: Yes (Life-Threatening, Hospitalization)
  Sender: NOVARTIS
  Company Number: CN-002147023-NVSC2024CN247409

PATIENT
  Age: 51 Year
  Sex: Female
  Weight: 56 kg

DRUGS (1)
  1. CERITINIB [Suspect]
     Active Substance: CERITINIB
     Indication: Lung neoplasm malignant
     Dosage: 450 MG, QD
     Route: 048
     Dates: start: 20230307, end: 20241227

REACTIONS (1)
  - Liver injury [Unknown]

NARRATIVE: CASE EVENT DATE: 20241227
